FAERS Safety Report 9451512 (Version 1)
Quarter: 2013Q3

REPORT INFORMATION
  Report Type: Spontaneous
  Country: US (occurrence: US)
  Receive Date: 20130811
  Receipt Date: 20130811
  Transmission Date: 20140515
  Serious: No
  Sender: FDA-Public Use
  Company Number: US-009507513-1308USA002299

PATIENT
  Sex: Male

DRUGS (2)
  1. PEGINTRON [Suspect]
     Indication: HEPATITIS C
     Dosage: REDIPEN
  2. REBETRON [Suspect]
     Indication: HEPATITIS C
     Dosage: UNK

REACTIONS (1)
  - Insomnia [Unknown]
